FAERS Safety Report 4299309-4 (Version None)
Quarter: 2004Q1

REPORT INFORMATION
  Report Type: 
  Country: None (occurrence: None)
  Receive Date: 20040217
  Receipt Date: 20040202
  Transmission Date: 20041129
  Serious: Yes (Hospitalization)
  Sender: FDA-Public Use
  Company Number: 03P-044-0240255-00

PATIENT
  Sex: 0
  Weight: 59 kg

DRUGS (13)
  1. HUMIRA [Suspect]
     Indication: RHEUMATOID ARTHRITIS
     Dosage: 40 MG, 1 IN 2 WK, SUBCUTANEOUS
     Route: 058
     Dates: start: 20030402, end: 20031015
  2. WARFARIN SODIUM [Concomitant]
  3. OMEPRAZOLE [Concomitant]
  4. FUROSEMIDE [Concomitant]
  5. PARACETAMOL [Concomitant]
  6. TRAMADOL HYDROCHLORIDE [Concomitant]
  7. PREDNISOLONE [Concomitant]
  8. ETIDRONATE DISODIUM [Concomitant]
  9. LANSOPRAZOLE [Concomitant]
  10. TRAMADOL HYDROCHLORIDE [Concomitant]
  11. NYSTATIN [Concomitant]
  12. DEPOT-IRON WITH VITAMIN C [Concomitant]
  13. HEPARIN-FRACTION, SODIUM SALT [Concomitant]

REACTIONS (10)
  - DIARRHOEA [None]
  - DIFFICULTY IN WALKING [None]
  - GENERAL PHYSICAL CONDITION ABNORMAL [None]
  - HYPOTENSION [None]
  - JOINT SWELLING [None]
  - NAUSEA [None]
  - OEDEMA PERIPHERAL [None]
  - PNEUMOCOCCAL SEPSIS [None]
  - PSORIASIS [None]
  - RHEUMATOID ARTHRITIS [None]
